FAERS Safety Report 6931723-8 (Version None)
Quarter: 2010Q3

REPORT INFORMATION
  Report Type: 
  Country: None (occurrence: None)
  Receive Date: 20100813
  Receipt Date: 20100421
  Transmission Date: 20110219
  Serious: No
  Sender: FDA-Public Use
  Company Number: 1000013157

PATIENT
  Age: 48 Year
  Sex: Female

DRUGS (4)
  1. SAVELLA [Suspect]
     Dosage: 12.5 MG (12.5 MG,1 IN1 D), ORAL
     Route: 048
     Dates: start: 20100301, end: 20100301
  2. NASAL STEROID (NOS) [Concomitant]
  3. ESTROGEN REPLACEMENT [Concomitant]
  4. VITAMIN D [Concomitant]

REACTIONS (1)
  - MEMORY IMPAIRMENT [None]
